FAERS Safety Report 7943541-2 (Version None)
Quarter: 2011Q4

REPORT INFORMATION
  Report Type: 
  Country: None (occurrence: None)
  Receive Date: 20111128
  Receipt Date: 20111123
  Transmission Date: 20120403
  Serious: Yes (Life-Threatening)
  Sender: FDA-Public Use
  Company Number: PHHY2011CA77551

PATIENT
  Age: 10 Year
  Sex: Male

DRUGS (4)
  1. PROMETHAZINE HCL [Suspect]
     Dosage: UNK
  2. IRON [Concomitant]
  3. DIMENHYDRINATE [Suspect]
     Route: 042
  4. DIPHENHYDRAMINE HCL [Suspect]

REACTIONS (1)
  - ANAPHYLACTIC SHOCK [None]
